FAERS Safety Report 8417526-6 (Version None)
Quarter: 2012Q2

REPORT INFORMATION
  Report Type: 
  Country: None (occurrence: None)
  Receive Date: 20120606
  Receipt Date: 20120524
  Transmission Date: 20120825
  Serious: Yes (Hospitalization)
  Sender: FDA-Public Use
  Company Number: IR-MYLANLABS-2012S1011129

PATIENT
  Age: 17 Year
  Sex: Female

DRUGS (1)
  1. HALOPERIDOL [Suspect]
     Indication: SUICIDE ATTEMPT
     Dosage: INGESTED TEN 5MG TABLETS
     Route: 048

REACTIONS (7)
  - BODY TEMPERATURE INCREASED [None]
  - INTENTIONAL OVERDOSE [None]
  - HYPOTENSION [None]
  - JOINT DISLOCATION [None]
  - SINUS TACHYCARDIA [None]
  - DYSTONIA [None]
  - ANXIETY [None]
